FAERS Safety Report 16909296 (Version 1)
Quarter: 2019Q4

REPORT INFORMATION
  Report Type: Spontaneous
  Country: US (occurrence: US)
  Receive Date: 20190820
  Receipt Date: 20190820
  Transmission Date: 20200122
  Serious: Yes (Disabling)
  Sender: FDA-Public Use
  Company Number: None

PATIENT
  Age: 82 Year
  Sex: Female
  Weight: 60.78 kg

DRUGS (12)
  1. FLUTICASONE PROPIONATE. [Concomitant]
     Active Substance: FLUTICASONE PROPIONATE
  2. VERAPAMIL [Concomitant]
     Active Substance: VERAPAMIL HYDROCHLORIDE
  3. RISEDRONATE [Concomitant]
     Active Substance: RISEDRONATE SODIUM
  4. CALCIUM 600 [Concomitant]
     Active Substance: CALCIUM
  5. FUROSEMIDE. [Concomitant]
     Active Substance: FUROSEMIDE
  6. OXYGEN. [Concomitant]
     Active Substance: OXYGEN
  7. CRANBERRY. [Concomitant]
     Active Substance: CRANBERRY
  8. AZITHROMYCIN ANHYDROUS. [Concomitant]
     Active Substance: AZITHROMYCIN ANHYDROUS
  9. VITAMIN B12 [Concomitant]
     Active Substance: CYANOCOBALAMIN
  10. SILDENAFIL. [Concomitant]
     Active Substance: SILDENAFIL
  11. COMBIVENT RESPIMAT [Suspect]
     Active Substance: ALBUTEROL SULFATE\IPRATROPIUM BROMIDE
     Indication: NAUSEA
     Dosage: ?          QUANTITY:2 DF DOSAGE FORM;?
     Route: 055
     Dates: start: 20190724, end: 20190725
  12. IPRATROPIUM [Concomitant]
     Active Substance: IPRATROPIUM

REACTIONS (4)
  - Influenza [None]
  - Feeling abnormal [None]
  - Pyrexia [None]
  - Heart rate irregular [None]

NARRATIVE: CASE EVENT DATE: 20190724
